FAERS Safety Report 16983527 (Version 1)
Quarter: 2019Q4

REPORT INFORMATION
  Report Type: Spontaneous
  Country: US (occurrence: US)
  Receive Date: 20190916
  Receipt Date: 20190916
  Transmission Date: 20200122
  Serious: Yes (Life-Threatening, Hospitalization, Disabling)
  Sender: FDA-Public Use
  Company Number: None

PATIENT
  Age: 48 Year
  Sex: Female
  Weight: 43.09 kg

DRUGS (2)
  1. ALDARA [Suspect]
     Active Substance: IMIQUIMOD
     Indication: SKIN EXFOLIATION
     Dosage: ?          QUANTITY:5 % PERCENT;?
     Dates: start: 20120507
  2. ALDARA [Suspect]
     Active Substance: IMIQUIMOD
     Indication: SKIN PAPILLOMA
     Dosage: ?          QUANTITY:5 % PERCENT;?
     Dates: start: 20120507

REACTIONS (8)
  - Pain in extremity [None]
  - Nasal disorder [None]
  - Pruritus [None]
  - Gait disturbance [None]
  - Groin pain [None]
  - Pain [None]
  - Cerebrovascular accident [None]
  - Skin papilloma [None]

NARRATIVE: CASE EVENT DATE: 2012
